FAERS Safety Report 11580428 (Version 3)
Quarter: 2016Q1

REPORT INFORMATION
  Report Type: Report from Study
  Country: DE (occurrence: DE)
  Receive Date: 20150930
  Receipt Date: 20160323
  Transmission Date: 20160525
  Serious: Yes (Hospitalization)
  Sender: FDA-Public Use
  Company Number: DE-BAXALTA-2015BLT001801

PATIENT
  Age: 9 Year
  Sex: Male
  Weight: 51.3 kg

DRUGS (6)
  1. PANTOPRAZOL [Concomitant]
     Active Substance: PANTOPRAZOLE SODIUM
     Indication: HAEMARTHROSIS
     Dosage: 20 MG, 1X A DAY
     Route: 048
     Dates: start: 20160111
  2. FEIBA NF [Suspect]
     Active Substance: ANTI-INHIBITOR COAGULANT COMPLEX
     Indication: HAEMORRHAGE PROPHYLAXIS
     Dosage: 300 IU, EVERY 8 HOURS
     Route: 042
     Dates: start: 20150915
  3. INSULIN [Concomitant]
     Active Substance: INSULIN NOS
     Indication: TYPE 1 DIABETES MELLITUS
     Dosage: UNK
     Route: 058
     Dates: start: 2014
  4. FEIBA NF [Suspect]
     Active Substance: ANTI-INHIBITOR COAGULANT COMPLEX
     Dosage: 4000 IU, 2X A DAY
     Route: 042
     Dates: start: 20150915, end: 20150920
  5. FEIBA NF [Suspect]
     Active Substance: ANTI-INHIBITOR COAGULANT COMPLEX
     Indication: FACTOR VIII DEFICIENCY
     Dosage: 5000 IU, UNK
     Route: 042
     Dates: start: 20150915, end: 20150915
  6. DICLOFENAC [Concomitant]
     Active Substance: DICLOFENAC
     Indication: HAEMARTHROSIS
     Dosage: 50 MG, 1X A DAY
     Route: 048
     Dates: start: 20160111

REACTIONS (1)
  - Central venous catheterisation [Recovered/Resolved]

NARRATIVE: CASE EVENT DATE: 20150915
